FAERS Safety Report 13945183 (Version 1)
Quarter: 2017Q3

REPORT INFORMATION
  Report Type: Spontaneous
  Country: US (occurrence: US)
  Receive Date: 20170907
  Receipt Date: 20170907
  Transmission Date: 20171128
  Serious: No
  Sender: FDA-Public Use
  Company Number: US-MACLEODS PHARMACEUTICALS US LTD-MAC2017005524

PATIENT

DRUGS (8)
  1. OLANZAPINE 15MG TABLET [Suspect]
     Active Substance: OLANZAPINE
     Indication: DEPRESSION
     Dosage: 15 MG, QD
     Route: 048
  2. OLANZAPINE 15MG TABLET [Suspect]
     Active Substance: OLANZAPINE
     Dosage: 20 MG, QD
     Route: 048
  3. IBRANCE [Suspect]
     Active Substance: PALBOCICLIB
     Indication: BREAST CANCER METASTATIC
     Dosage: 125 MG, UNK (2 YEARS AGO)
     Route: 048
  4. IBRANCE [Suspect]
     Active Substance: PALBOCICLIB
     Dosage: 75 MG, QD(WITH FOOD)
     Route: 048
     Dates: start: 201506
  5. LATROZOLE [Suspect]
     Active Substance: LETROZOLE
     Indication: BREAST CANCER METASTATIC
     Dosage: 2.5 MG, QD (NDC NO 51991-07 9-33)
     Route: 048
     Dates: start: 201506
  6. OLANZAPINE 15MG TABLET [Suspect]
     Active Substance: OLANZAPINE
     Dosage: 15 MG, QD (AT NIGHT) (NDC NO 33342-0070-07)
     Route: 048
     Dates: start: 201706
  7. OLANZAPINE 15MG TABLET [Suspect]
     Active Substance: OLANZAPINE
     Dosage: 10 MG, QD
     Route: 048
  8. LAMICTAL [Concomitant]
     Active Substance: LAMOTRIGINE
     Indication: DEPRESSION
     Dosage: 100 MG, QD
     Route: 048
     Dates: start: 20170501

REACTIONS (4)
  - Dizziness [Recovering/Resolving]
  - Depression [Recovered/Resolved]
  - Memory impairment [Not Recovered/Not Resolved]
  - White blood cell count decreased [Recovered/Resolved]

NARRATIVE: CASE EVENT DATE: 2015
